FAERS Safety Report 9046414 (Version 1)
Quarter: 2013Q1

REPORT INFORMATION
  Report Type: Spontaneous
  Country: US (occurrence: None)
  Receive Date: 20130128
  Receipt Date: 20130128
  Transmission Date: 20140127
  Serious: Yes (Hospitalization)
  Sender: FDA-Public Use
  Company Number: None

PATIENT
  Age: 59 Year
  Sex: Female

DRUGS (2)
  1. PEGASYS [Suspect]
     Indication: HEPATITIS C
  2. RIBASPHERE, 200 MG, KADON [Suspect]
     Dosage: -600/400-
     Route: 048

REACTIONS (2)
  - Anaemia [None]
  - White blood cell count decreased [None]
